FAERS Safety Report 8073303-X (Version None)
Quarter: 2011Q4

REPORT INFORMATION
  Report Type: 
  Country: None (occurrence: None)
  Receive Date: 20111221
  Receipt Date: 20101222
  Transmission Date: 20120403
  Serious: Yes (Death)
  Sender: FDA-Public Use
  Company Number: PHEH2010US01685

PATIENT
  Age: 64 Year
  Sex: Female

DRUGS (2)
  1. VIDAZA [Concomitant]
  2. EXJADE [Suspect]
     Indication: IRON OVERLOAD
     Dosage: 1000 MG, QD (DAILY), ORAL
     Route: 048
     Dates: start: 20090219, end: 20090514

REACTIONS (5)
  - ABDOMINAL PAIN [None]
  - NEOPLASM MALIGNANT [None]
  - WEIGHT DECREASED [None]
  - NAUSEA [None]
  - ACUTE MYELOID LEUKAEMIA [None]
